FAERS Safety Report 18778121 (Version 3)
Quarter: 2021Q2

REPORT INFORMATION
  Report Type: Spontaneous
  Country: KZ (occurrence: KZ)
  Receive Date: 20210123
  Receipt Date: 20210624
  Transmission Date: 20210717
  Serious: Yes (Other)
  Sender: FDA-Public Use
  Company Number: KZ-TAKEDA-2020TUS036710

PATIENT
  Age: 30 Year
  Sex: Female

DRUGS (5)
  1. ENTYVIO [Suspect]
     Active Substance: VEDOLIZUMAB
     Indication: CROHN^S DISEASE
     Dosage: UNK
     Route: 042
     Dates: start: 20200529, end: 20210517
  2. ENTYVIO [Suspect]
     Active Substance: VEDOLIZUMAB
     Indication: IRON DEFICIENCY ANAEMIA
  3. ENTYVIO [Suspect]
     Active Substance: VEDOLIZUMAB
     Indication: COLITIS
  4. ENTYVIO [Suspect]
     Active Substance: VEDOLIZUMAB
     Indication: GASTROINTESTINAL MUCOSAL DISORDER
  5. ENTYVIO [Suspect]
     Active Substance: VEDOLIZUMAB
     Indication: CROHN^S DISEASE

REACTIONS (10)
  - Crohn^s disease [Not Recovered/Not Resolved]
  - Off label use [Unknown]
  - Large intestinal stenosis [Unknown]
  - Female genital tract fistula [Unknown]
  - Asthenia [Unknown]
  - Dyspnoea [Unknown]
  - Wheezing [Unknown]
  - Cough [Unknown]
  - Therapeutic reaction time decreased [Unknown]
  - Bronchitis [Unknown]
